FAERS Safety Report 8576418-2 (Version None)
Quarter: 2012Q3

REPORT INFORMATION
  Report Type: 
  Country: None (occurrence: None)
  Receive Date: 20120807
  Receipt Date: 20120803
  Transmission Date: 20120928
  Serious: Yes (Hospitalization, Other)
  Sender: FDA-Public Use
  Company Number: US-ROCHE-730913

PATIENT
  Sex: Male
  Weight: 77.1 kg

DRUGS (1)
  1. ACCUTANE [Suspect]
     Indication: ACNE
     Route: 065
     Dates: start: 20000301, end: 20010301

REACTIONS (7)
  - GASTROINTESTINAL INJURY [None]
  - INFLAMMATORY BOWEL DISEASE [None]
  - DEEP VEIN THROMBOSIS [None]
  - ANAEMIA [None]
  - COLITIS [None]
  - GASTROINTESTINAL HAEMORRHAGE [None]
  - ATTENTION DEFICIT/HYPERACTIVITY DISORDER [None]
